FAERS Safety Report 22018699 (Version 1)
Quarter: 2023Q1

REPORT INFORMATION
  Report Type: Spontaneous
  Country: PT (occurrence: PT)
  Receive Date: 20230222
  Receipt Date: 20230222
  Transmission Date: 20230418
  Serious: Yes (Other)
  Sender: FDA-Public Use
  Company Number: PT-Vifor (International) Inc.-VIT-2023-01117

PATIENT
  Sex: Male

DRUGS (2)
  1. VELTASSA [Suspect]
     Active Substance: PATIROMER
     Indication: Product used for unknown indication
     Dosage: TWO SACHETS PER DAY
     Route: 048
     Dates: start: 2022
  2. VELTASSA [Suspect]
     Active Substance: PATIROMER

REACTIONS (1)
  - Metabolic acidosis [Unknown]
